FAERS Safety Report 5065400-8 (Version None)
Quarter: 2006Q3

REPORT INFORMATION
  Report Type: 
  Country: None (occurrence: None)
  Receive Date: 20060731
  Receipt Date: 20060724
  Transmission Date: 20061208
  Serious: Yes (Hospitalization)
  Sender: FDA-Public Use
  Company Number: JP-AVENTIS-200612341JP

PATIENT
  Age: 59 Year
  Sex: Female

DRUGS (6)
  1. ARAVA [Suspect]
     Indication: RHEUMATOID ARTHRITIS
     Route: 048
     Dates: start: 20030927, end: 20031010
  2. ARAVA [Suspect]
     Route: 048
     Dates: start: 20031011, end: 20040113
  3. ARAVA [Suspect]
     Route: 048
     Dates: start: 20040114, end: 20040127
  4. ARAVA [Suspect]
     Route: 048
     Dates: start: 20040302
  5. FOSAMAC TABLETS [Concomitant]
  6. VOLTAREN [Concomitant]

REACTIONS (1)
  - UTERINE CANCER [None]
